FAERS Safety Report 6405871-5 (Version None)
Quarter: 2009Q4

REPORT INFORMATION
  Report Type: 
  Country: None (occurrence: None)
  Receive Date: 20091016
  Receipt Date: 20091016
  Transmission Date: 20100525
  Serious: Yes (Other)
  Sender: FDA-Public Use
  Company Number: None

PATIENT
  Age: 34 Year
  Sex: Male
  Weight: 83.9154 kg

DRUGS (6)
  1. LEVAQUIN [Suspect]
     Indication: BACTERIAL INFECTION
     Dosage: 500 MG ONCE DAILY PO
     Route: 048
     Dates: start: 20090923, end: 20090923
  2. LEVAQUIN [Suspect]
     Indication: PROSTATITIS
     Dosage: 500 MG ONCE DAILY PO
     Route: 048
     Dates: start: 20090923, end: 20090923
  3. OMNARIS NASAL SPRAY [Concomitant]
  4. ZYRTEC [Concomitant]
  5. CLONAZEPAM [Concomitant]
  6. SEROQUEL [Concomitant]

REACTIONS (9)
  - ABASIA [None]
  - ARTHRALGIA [None]
  - BACK PAIN [None]
  - DYSSTASIA [None]
  - FIBROMYALGIA [None]
  - GAIT DISTURBANCE [None]
  - NECK PAIN [None]
  - PRURITUS GENERALISED [None]
  - TENDONITIS [None]
